FAERS Safety Report 4594214-8 (Version None)
Quarter: 2005Q1

REPORT INFORMATION
  Report Type: 
  Country: None (occurrence: None)
  Receive Date: 20050301
  Receipt Date: 20040706
  Transmission Date: 20050727
  Serious: No
  Sender: FDA-Public Use
  Company Number: US-GLAXOSMITHKLINE-A0517079A

PATIENT
  Sex: Female

DRUGS (4)
  1. VALTREX [Suspect]
     Dosage: 1G THREE TIMES PER DAY
     Route: 048
     Dates: start: 20020301
  2. PREMARIN [Concomitant]
  3. PEROXIDINE [Concomitant]
  4. AMOXICILLIN [Concomitant]

REACTIONS (2)
  - FEELING HOT [None]
  - LOCAL SWELLING [None]
